FAERS Safety Report 13889504 (Version 2)
Quarter: 2018Q3

REPORT INFORMATION
  Report Type: Spontaneous
  Country: US (occurrence: US)
  Receive Date: 20170822
  Receipt Date: 20180731
  Transmission Date: 20181010
  Serious: Yes (Life-Threatening, Hospitalization, Disabling, Other)
  Sender: FDA-Public Use
  Company Number: US-ENDO PHARMACEUTICALS INC-2016-007111

PATIENT
  Age: 59 Year
  Sex: Male
  Weight: 170.98 kg

DRUGS (2)
  1. ANDROGEL [Suspect]
     Active Substance: TESTOSTERONE
     Indication: ANDROGEN REPLACEMENT THERAPY
     Dosage: UNK UNKNOWN, UNKNOWN
     Route: 065
     Dates: start: 20120723, end: 201209
  2. TESTOPEL [Suspect]
     Active Substance: TESTOSTERONE
     Indication: ANDROGEN REPLACEMENT THERAPY
     Dosage: UNK UNKNOWN, UNKNOWN
     Route: 058
     Dates: start: 201210, end: 201311

REACTIONS (4)
  - Erectile dysfunction [Not Recovered/Not Resolved]
  - Myocardial infarction [Not Recovered/Not Resolved]
  - General physical health deterioration [Not Recovered/Not Resolved]
  - Emotional disorder [Not Recovered/Not Resolved]

NARRATIVE: CASE EVENT DATE: 201311
